FAERS Safety Report 5672366-6 (Version None)
Quarter: 2008Q1

REPORT INFORMATION
  Report Type: 
  Country: None (occurrence: None)
  Receive Date: 20080319
  Receipt Date: 20080311
  Transmission Date: 20080703
  Serious: Yes (Other)
  Sender: FDA-Public Use
  Company Number: PHBS2008AR03392

PATIENT
  Age: 72 Year
  Sex: Female

DRUGS (1)
  1. PAMIDRONATE DISODIUM [Suspect]
     Indication: BREAST CANCER

REACTIONS (2)
  - NUMB CHIN SYNDROME [None]
  - OSTEONECROSIS [None]
